FAERS Safety Report 7739957-X (Version None)
Quarter: 2011Q3

REPORT INFORMATION
  Report Type: 
  Country: None (occurrence: None)
  Receive Date: 20110909
  Receipt Date: 20110830
  Transmission Date: 20111222
  Serious: Yes (Other)
  Sender: FDA-Public Use
  Company Number: US-JNJFOC-20110900608

PATIENT
  Sex: Female

DRUGS (4)
  1. TYLENOL-500 [Suspect]
     Indication: PRODUCT USED FOR UNKNOWN INDICATION
     Route: 048
  2. EXTRA STRENGTH TYLENOL [Suspect]
     Indication: PRODUCT USED FOR UNKNOWN INDICATION
     Route: 048
  3. TYLENOL-500 [Suspect]
     Route: 048
  4. EXTRA STRENGTH TYLENOL [Suspect]
     Route: 048

REACTIONS (1)
  - CONVULSION [None]
